FAERS Safety Report 18512511 (Version 1)
Quarter: 2020Q4

REPORT INFORMATION
  Report Type: Spontaneous
  Country: FR (occurrence: FR)
  Receive Date: 20201117
  Receipt Date: 20201117
  Transmission Date: 20210114
  Serious: Yes (Hospitalization)
  Sender: FDA-Public Use
  Company Number: FR-009507513-2011FRA009484

PATIENT
  Age: 58 Year
  Sex: Male
  Weight: 54 kg

DRUGS (2)
  1. PEMETREXED DISODIUM [Suspect]
     Active Substance: PEMETREXED DISODIUM
     Indication: LUNG ADENOCARCINOMA
     Dosage: UNK
     Route: 042
     Dates: start: 20200224, end: 20200901
  2. KEYTRUDA [Suspect]
     Active Substance: PEMBROLIZUMAB
     Indication: LUNG ADENOCARCINOMA
     Dosage: 400 MILLIGRAM
     Route: 042
     Dates: start: 20200224, end: 20200901

REACTIONS (5)
  - Ketoacidosis [Recovered/Resolved with Sequelae]
  - Neuropathy peripheral [Not Recovered/Not Resolved]
  - Interstitial lung disease [Recovered/Resolved]
  - Lichenoid keratosis [Not Recovered/Not Resolved]
  - Diabetes mellitus [Not Recovered/Not Resolved]

NARRATIVE: CASE EVENT DATE: 20200730
